FAERS Safety Report 8090882-7 (Version None)
Quarter: 2012Q1

REPORT INFORMATION
  Report Type: 
  Country: None (occurrence: None)
  Receive Date: 20120125
  Receipt Date: 20120111
  Transmission Date: 20120608
  Serious: Yes (Death, Hospitalization, Disabling, Other)
  Sender: FDA-Public Use
  Company Number: 2012MA000484

PATIENT
  Sex: Male
  Weight: 144.8 kg

DRUGS (30)
  1. AUGMENTIN '125' [Concomitant]
  2. NYSTATIN [Concomitant]
  3. TERAZOSIN HCL [Concomitant]
  4. DOCUSATE [Concomitant]
  5. OMEPRAZOLE [Concomitant]
  6. WARFARIN SODIUM [Concomitant]
  7. NIACIN [Concomitant]
  8. NITROGLYCERIN [Concomitant]
  9. MOXIFLOXACIN [Concomitant]
  10. AMOXICILLIN [Concomitant]
  11. SULFACETAMIDE [Concomitant]
  12. FUROSEMIDE [Concomitant]
  13. IRON [Concomitant]
  14. DIGOXIN [Suspect]
     Indication: CARDIAC DISORDER
     Dosage: 0.125 MG;QD;PO
     Route: 048
     Dates: start: 20030705, end: 20080728
  15. DOXAZOSIN [Concomitant]
  16. TAMSULOSIN HCL [Concomitant]
  17. METOPROLOL SUCCINATE [Concomitant]
  18. FLOMAX [Concomitant]
  19. CLAVULANATE POTASSIUM [Concomitant]
  20. BACTRIM [Concomitant]
  21. CLINDAMYCIN [Concomitant]
  22. BACTROBAN [Concomitant]
  23. COLESTIPOL HYDROCHLORIDE [Concomitant]
  24. MEGESTROL ACETATE [Concomitant]
  25. HYTRIN [Concomitant]
  26. FOSINOPRIL SODIUM [Concomitant]
  27. SIMVASTATIN [Concomitant]
  28. VERAPAMIL [Concomitant]
  29. FISH OIL [Concomitant]
  30. LISINOPRIL [Concomitant]

REACTIONS (39)
  - URINARY RETENTION [None]
  - PAIN [None]
  - BENIGN PROSTATIC HYPERPLASIA [None]
  - INDURATION [None]
  - UNEVALUABLE EVENT [None]
  - CORONARY ARTERY DISEASE [None]
  - MUSCLE ATROPHY [None]
  - DIZZINESS POSTURAL [None]
  - MITRAL VALVE CALCIFICATION [None]
  - HEART RATE IRREGULAR [None]
  - DYSPNOEA [None]
  - EYE INFECTION [None]
  - CARDIOMEGALY [None]
  - ORTHOSIS USER [None]
  - TREATMENT NONCOMPLIANCE [None]
  - ASTHENIA [None]
  - GASTRIC HAEMORRHAGE [None]
  - OESOPHAGEAL ULCER [None]
  - PROSTATE INFECTION [None]
  - AORTIC ARTERIOSCLEROSIS [None]
  - LOW DENSITY LIPOPROTEIN INCREASED [None]
  - BARRETT'S OESOPHAGUS [None]
  - ATRIAL FIBRILLATION [None]
  - WALKING AID USER [None]
  - DEATH OF RELATIVE [None]
  - GAIT DISTURBANCE [None]
  - MYOCARDIAL INFARCTION [None]
  - STAPHYLOCOCCAL INFECTION [None]
  - DECUBITUS ULCER [None]
  - ATRIAL FLUTTER [None]
  - HIGH DENSITY LIPOPROTEIN DECREASED [None]
  - PROTHROMBIN TIME PROLONGED [None]
  - PROSTATIC SPECIFIC ANTIGEN INCREASED [None]
  - ACTIVITIES OF DAILY LIVING IMPAIRED [None]
  - ELECTROCARDIOGRAM ST-T CHANGE [None]
  - HYPERCHOLESTEROLAEMIA [None]
  - URINE FLOW DECREASED [None]
  - FUNGAL INFECTION [None]
  - BLOOD PRESSURE DIASTOLIC DECREASED [None]
